FAERS Safety Report 7023676-1 (Version None)
Quarter: 2010Q3

REPORT INFORMATION
  Report Type: 
  Country: None (occurrence: None)
  Receive Date: 20100929
  Receipt Date: 20100929
  Transmission Date: 20110219
  Serious: Yes (Other)
  Sender: FDA-Public Use
  Company Number: None

PATIENT
  Age: 56 Year
  Sex: Male
  Weight: 56 kg

DRUGS (2)
  1. CARBOPLATIN [Suspect]
     Dosage: 777 MG ONCE IV
     Route: 042
     Dates: start: 20100720, end: 20100720
  2. TAXOL [Suspect]
     Dosage: 329 MG ONCE IV
     Route: 042
     Dates: start: 20100720, end: 20100720

REACTIONS (4)
  - INJECTION SITE ERYTHEMA [None]
  - INJECTION SITE PAIN [None]
  - INJECTION SITE SWELLING [None]
  - INJECTION SITE VESICLES [None]
